FAERS Safety Report 22378190 (Version 1)
Quarter: 2023Q2

REPORT INFORMATION
  Report Type: Spontaneous
  Country: US (occurrence: US)
  Receive Date: 20230529
  Receipt Date: 20230529
  Transmission Date: 20230721
  Serious: Yes (Other)
  Sender: FDA-Public Use
  Company Number: US-MLMSERVICE-20230515-4285591-2

PATIENT
  Age: 33 Year
  Sex: Male

DRUGS (3)
  1. PREDNISONE [Suspect]
     Active Substance: PREDNISONE
     Indication: Immunosuppressant drug therapy
     Dosage: UNK
     Route: 065
  2. TACROLIMUS [Suspect]
     Active Substance: TACROLIMUS
     Indication: Immunosuppressant drug therapy
     Dosage: UNK
     Route: 065
  3. MILRINONE [Concomitant]
     Active Substance: MILRINONE
     Indication: Cardiomyopathy
     Dosage: UNK
     Route: 065

REACTIONS (2)
  - Pulmonary mass [Recovering/Resolving]
  - Pneumonia cryptococcal [Recovering/Resolving]
